FAERS Safety Report 20690961 (Version 1)
Quarter: 2022Q2

REPORT INFORMATION
  Report Type: Spontaneous
  Country: US (occurrence: None)
  Receive Date: 20220408
  Receipt Date: 20220408
  Transmission Date: 20220721
  Serious: Yes (Other)
  Sender: FDA-Public Use
  Company Number: None

PATIENT
  Age: 32 Year

DRUGS (5)
  1. NICOTINE\PROPYLENE GLYCOL [Suspect]
     Active Substance: NICOTINE\PROPYLENE GLYCOL
  2. Six Star Creatine X3 C4 Sport Pre-Workout [Concomitant]
  3. FINASTERIDE [Concomitant]
     Active Substance: FINASTERIDE
  4. SERTRALINE [Concomitant]
     Active Substance: SERTRALINE HYDROCHLORIDE
  5. HYDROXYZINE [Concomitant]
     Active Substance: HYDROXYZINE HYDROCHLORIDE

REACTIONS (1)
  - Seizure [None]
